FAERS Safety Report 8601069 (Version 2)
Quarter: 2013Q1

REPORT INFORMATION
  Report Type: Spontaneous
  Country: US (occurrence: US)
  Receive Date: 20120606
  Receipt Date: 20130102
  Transmission Date: 20140127
  Serious: Yes (Death, Congenital Anomaly, Other)
  Sender: FDA-Public Use
  Company Number: US-PFIZER INC-2012132547

PATIENT
  Sex: Male
  Weight: 1.2 kg

DRUGS (12)
  1. ZOLOFT [Suspect]
     Indication: DEPRESSION
     Dosage: 75 MG, 1X/DAY
     Route: 064
     Dates: start: 20090925, end: 20100107
  2. ZOLOFT [Suspect]
     Dosage: 50 MG, UNK
     Route: 064
     Dates: start: 20090925
  3. SERTRALINE HCL [Suspect]
     Dosage: UNK
     Route: 064
  4. PRENATAL VITAMINS [Concomitant]
     Dosage: UNK
     Route: 064
  5. DOCUSATE SODIUM [Concomitant]
     Dosage: UNK
     Route: 064
  6. IRON SUPPLEMENT [Concomitant]
     Dosage: UNK
     Route: 064
  7. IBUPROFEN [Concomitant]
     Dosage: UNK
     Route: 064
  8. LORAZEPAM [Concomitant]
     Dosage: UNK
     Route: 064
  9. VALACICLOVIR [Concomitant]
     Dosage: UNK
     Route: 064
  10. DICLOXACILLIN [Concomitant]
     Dosage: UNK
     Route: 064
  11. ALPRAZOLAM [Concomitant]
     Dosage: UNK
     Route: 064
  12. PROPOXYPHENE NAPSYLATE W/ACETAMINOPHENE [Concomitant]
     Dosage: UNK
     Route: 064

REACTIONS (12)
  - Maternal exposure timing unspecified [Fatal]
  - Atrioventricular septal defect [Fatal]
  - Ventricular hypertrophy [Fatal]
  - Transposition of the great vessels [Unknown]
  - Ventricular septal defect [Unknown]
  - Aorta hypoplasia [Unknown]
  - Congenital heart valve disorder [Unknown]
  - Coarctation of the aorta [Unknown]
  - Ventricular septal defect [Unknown]
  - Patent ductus arteriosus [Unknown]
  - Neonatal respiratory distress syndrome [Unknown]
  - Atrial septal defect [Unknown]
